FAERS Safety Report 9477295 (Version 1)
Quarter: 2013Q3

REPORT INFORMATION
  Report Type: Spontaneous
  Country: IT (occurrence: IT)
  Receive Date: 20130826
  Receipt Date: 20130826
  Transmission Date: 20140515
  Serious: Yes (Hospitalization)
  Sender: FDA-Public Use
  Company Number: IT-WATSON-2013-15394

PATIENT
  Age: 52 Year
  Sex: Female

DRUGS (1)
  1. LORAZEPAM (UNKNOWN) [Suspect]
     Indication: ANXIETY
     Dosage: 20 MG, SINGLE
     Route: 048
     Dates: start: 20130513, end: 20130513

REACTIONS (2)
  - Sopor [Recovered/Resolved]
  - Overdose [Recovered/Resolved]
